FAERS Safety Report 10976353 (Version 1)
Quarter: 2015Q2

REPORT INFORMATION
  Report Type: Spontaneous
  Country: US (occurrence: US)
  Receive Date: 20150401
  Receipt Date: 20150401
  Transmission Date: 20150821
  Serious: Yes (Other)
  Sender: FDA-Public Use
  Company Number: US-RB-075155-15

PATIENT
  Age: 78 Year
  Sex: Male

DRUGS (9)
  1. EXELON PATCH [Concomitant]
     Active Substance: RIVASTIGMINE
     Indication: PRODUCT USED FOR UNKNOWN INDICATION
     Route: 065
  2. LASIKS [Concomitant]
     Indication: PRODUCT USED FOR UNKNOWN INDICATION
     Dosage: 30MG
     Route: 065
  3. WARFARIN [Concomitant]
     Active Substance: WARFARIN
     Indication: PRODUCT USED FOR UNKNOWN INDICATION
     Route: 065
  4. CARVEDILOL. [Concomitant]
     Active Substance: CARVEDILOL
     Indication: PRODUCT USED FOR UNKNOWN INDICATION
     Dosage: 1 TO 3.125 MG 2 TIMES PER DAY
     Route: 065
  5. POTASSIUM [Concomitant]
     Active Substance: POTASSIUM
     Indication: PRODUCT USED FOR UNKNOWN INDICATION
     Dosage: TAKES 20MG DAILY,CURRENTLY TAKING 30 BECAUSE OF WHEEZING
     Route: 065
  6. MULTIVITAMIN WITHOUT VITAMIN K [Concomitant]
     Indication: PRODUCT USED FOR UNKNOWN INDICATION
     Route: 065
  7. MUCINEX [Suspect]
     Active Substance: GUAIFENESIN
     Indication: RESPIRATORY TRACT CONGESTION
     Dosage: START DATE: ??/MAR/2015; TOOK 1 AT NOON AND THE OTHER AT MIDNIGHT
     Route: 065
  8. CARVBIDOPA/LEVO [Concomitant]
     Indication: PRODUCT USED FOR UNKNOWN INDICATION
     Dosage: 5 TIMES PER DAY, TOTAL DOSE OF 7MG SPREAD OUT OVER THE DAY, ALSO GETS AN ADDITIONAL DOSE AT BEDTIME
     Route: 065
  9. MUCINEX [Suspect]
     Active Substance: GUAIFENESIN
     Indication: WHEEZING
     Dosage: START DATE: ??/MAR/2015; TOOK 1 AT NOON AND THE OTHER AT MIDNIGHT
     Route: 065

REACTIONS (3)
  - Fatigue [Recovered/Resolved]
  - Prothrombin time prolonged [Recovered/Resolved]
  - Epistaxis [Recovered/Resolved]

NARRATIVE: CASE EVENT DATE: 201503
